FAERS Safety Report 15505807 (Version 2)
Quarter: 2019Q1

REPORT INFORMATION
  Report Type: Spontaneous
  Country: US (occurrence: US)
  Receive Date: 20181016
  Receipt Date: 20190206
  Transmission Date: 20190417
  Serious: No
  Sender: FDA-Public Use
  Company Number: US-BAYER-2018-192307

PATIENT
  Age: 63 Year
  Sex: Female

DRUGS (10)
  1. ALEVE [Concomitant]
     Active Substance: NAPROXEN SODIUM
  2. FISH OIL [Concomitant]
     Active Substance: FISH OIL
  3. AMLODIPINE [Concomitant]
     Active Substance: AMLODIPINE BESYLATE
  4. BAYER LOW DOSE [Concomitant]
     Active Substance: ASPIRIN
  5. BETASERON [Suspect]
     Active Substance: INTERFERON BETA-1B
     Indication: MULTIPLE SCLEROSIS
     Dosage: 0.3 MG, UNK
     Dates: start: 2006
  6. SYNTHROID [Concomitant]
     Active Substance: LEVOTHYROXINE SODIUM
  7. TRIAMTERENE. [Concomitant]
     Active Substance: TRIAMTERENE
  8. LORATADINE. [Concomitant]
     Active Substance: LORATADINE
  9. BETASERON [Suspect]
     Active Substance: INTERFERON BETA-1B
     Indication: MULTIPLE SCLEROSIS
     Dosage: 0.3 MG, QOD
     Route: 058
     Dates: start: 20150114
  10. CALCIUM + MAGNESIUM [Concomitant]

REACTIONS (3)
  - Influenza like illness [None]
  - Pain [Not Recovered/Not Resolved]
  - Rash papular [None]
